FAERS Safety Report 7950176-4 (Version None)
Quarter: 2011Q4

REPORT INFORMATION
  Report Type: 
  Country: None (occurrence: None)
  Receive Date: 20111130
  Receipt Date: 20111122
  Transmission Date: 20120403
  Serious: Yes (Hospitalization, Other)
  Sender: FDA-Public Use
  Company Number: GB-ABBOTT-11P-167-0844015-00

PATIENT
  Sex: Male
  Weight: 96 kg

DRUGS (11)
  1. SPIRONOLACTONE [Concomitant]
     Indication: PRODUCT USED FOR UNKNOWN INDICATION
     Route: 048
     Dates: start: 20110321
  2. HUMIRA [Suspect]
     Indication: PSORIASIS
     Route: 058
     Dates: start: 20100807
  3. VITAMIN B COMPLEX CAP [Concomitant]
     Indication: PRODUCT USED FOR UNKNOWN INDICATION
     Route: 048
     Dates: start: 20110110
  4. THIAMINE HCL [Concomitant]
     Indication: PRODUCT USED FOR UNKNOWN INDICATION
     Route: 048
     Dates: start: 20100421
  5. BALNEUM BATH OIL [Concomitant]
     Indication: PRODUCT USED FOR UNKNOWN INDICATION
     Route: 061
     Dates: start: 20071019
  6. DIPROBASE [Concomitant]
     Indication: PRODUCT USED FOR UNKNOWN INDICATION
     Route: 061
     Dates: start: 20071019
  7. LANSOPRAZOLE [Concomitant]
     Indication: PRODUCT USED FOR UNKNOWN INDICATION
     Route: 048
     Dates: start: 20100421
  8. FUROSEMIDE [Concomitant]
     Indication: PRODUCT USED FOR UNKNOWN INDICATION
     Route: 048
  9. POLYTAR [Concomitant]
     Indication: PRODUCT USED FOR UNKNOWN INDICATION
     Route: 061
     Dates: start: 20070803
  10. FERROUS SULFATE TAB [Concomitant]
     Indication: PRODUCT USED FOR UNKNOWN INDICATION
     Route: 048
     Dates: start: 20100101
  11. PROPRANOLOL [Concomitant]
     Indication: PRODUCT USED FOR UNKNOWN INDICATION
     Dates: start: 20110317

REACTIONS (5)
  - LIVER DISORDER [None]
  - JAUNDICE [None]
  - ASCITES [None]
  - LIVER FUNCTION TEST ABNORMAL [None]
  - CIRRHOSIS ALCOHOLIC [None]
